FAERS Safety Report 23601130 (Version 1)
Quarter: 2024Q1

REPORT INFORMATION
  Report Type: Spontaneous
  Country: FR (occurrence: FR)
  Receive Date: 20240306
  Receipt Date: 20240306
  Transmission Date: 20240410
  Serious: Yes (Other)
  Sender: FDA-Public Use
  Company Number: None

PATIENT
  Age: 87 Year
  Sex: Male

DRUGS (2)
  1. PIPERACILLIN SODIUM\TAZOBACTAM SODIUM [Suspect]
     Active Substance: PIPERACILLIN SODIUM\TAZOBACTAM SODIUM
     Indication: Disseminated Bacillus Calmette-Guerin infection
     Route: 042
     Dates: start: 20240208, end: 20240210
  2. IOBITRIDOL [Suspect]
     Active Substance: IOBITRIDOL
     Indication: Computerised tomogram
     Dosage: 2 DF
     Route: 042
     Dates: start: 20240129, end: 20240209

REACTIONS (5)
  - Toxic skin eruption [Unknown]
  - Dermatitis [Unknown]
  - Rash maculo-papular [Not Recovered/Not Resolved]
  - Transaminases increased [Not Recovered/Not Resolved]
  - Off label use [Unknown]

NARRATIVE: CASE EVENT DATE: 20240208
